FAERS Safety Report 19753953 (Version 1)
Quarter: 2021Q3

REPORT INFORMATION
  Report Type: Report from Study
  Country: GB (occurrence: CN)
  Receive Date: 20210827
  Receipt Date: 20210827
  Transmission Date: 20211014
  Serious: Yes (Other)
  Sender: FDA-Public Use
  Company Number: CN-ELI_LILLY_AND_COMPANY-CN202108008539

PATIENT
  Age: 5 Year
  Sex: Male
  Weight: 19.8 kg

DRUGS (1)
  1. HUMATROPE [Suspect]
     Active Substance: SOMATROPIN
     Indication: SHORT STATURE
     Dosage: UNK, UNKNOWN
     Route: 065

REACTIONS (1)
  - Dysplasia [Unknown]
